FAERS Safety Report 20977209 (Version 2)
Quarter: 2022Q2

REPORT INFORMATION
  Report Type: Spontaneous
  Country: US (occurrence: US)
  Receive Date: 20220617
  Receipt Date: 20220620
  Transmission Date: 20220720
  Serious: No
  Sender: FDA-Public Use
  Company Number: US-BAYER-2022A084987

PATIENT
  Sex: Male

DRUGS (1)
  1. CLARITIN-D 12 HOUR [Suspect]
     Active Substance: LORATADINE\PSEUDOEPHEDRINE SULFATE
     Dosage: TABLET/CAPLET/GELCAP, 1 DOSE ONLY
     Route: 048

REACTIONS (4)
  - Eye allergy [Unknown]
  - Eye pain [Unknown]
  - Eye pruritus [Unknown]
  - Ocular hyperaemia [Unknown]
